FAERS Safety Report 17686087 (Version 1)
Quarter: 2020Q2

REPORT INFORMATION
  Report Type: Spontaneous
  Country: US (occurrence: US)
  Receive Date: 20200420
  Receipt Date: 20200420
  Transmission Date: 20200714
  Serious: No
  Sender: FDA-Public Use
  Company Number: None

PATIENT
  Age: 59 Year
  Sex: Female
  Weight: 76.5 kg

DRUGS (3)
  1. LEVOTHYRODIXINE [Concomitant]
  2. METFORMIN [Concomitant]
     Active Substance: METFORMIN HYDROCHLORIDE
  3. PRALUENT [Suspect]
     Active Substance: ALIROCUMAB
     Indication: BLOOD CHOLESTEROL
     Dosage: ?          QUANTITY:2 INJECTION(S);OTHER FREQUENCY:1 PEN EVERY 2 WEEK;OTHER ROUTE:1PEN EVERY 2 WEEKS?
     Dates: start: 20200217

REACTIONS (6)
  - Hyperhidrosis [None]
  - Chest pain [None]
  - Peripheral swelling [None]
  - Chills [None]
  - Eye swelling [None]
  - Musculoskeletal stiffness [None]
